FAERS Safety Report 10744354 (Version 5)
Quarter: 2015Q4

REPORT INFORMATION
  Report Type: Spontaneous
  Country: US (occurrence: US)
  Receive Date: 20150128
  Receipt Date: 20151126
  Transmission Date: 20160304
  Serious: No
  Sender: FDA-Public Use
  Company Number: US-PFIZER INC-2015029725

PATIENT
  Age: 80 Year
  Sex: Male
  Weight: 79 kg

DRUGS (6)
  1. SUTENT [Suspect]
     Active Substance: SUNITINIB MALATE
     Dosage: 25 MG, CYCLIC (25MG CAPSULE BY ONCE A DAY 28 DAYS ON, THEN 14 DAYS OFF)
     Route: 048
  2. SUTENT [Suspect]
     Active Substance: SUNITINIB MALATE
     Dosage: 25 MG, CYCLIC (28 DAYS ON/14 DAYS OFF)
     Dates: start: 20131101
  3. PRESERVISION [Concomitant]
     Active Substance: MINERALS\VITAMINS
     Dosage: UNK
  4. ASPIRIN. [Concomitant]
     Active Substance: ASPIRIN
     Dosage: UNK
  5. SUTENT [Suspect]
     Active Substance: SUNITINIB MALATE
     Indication: RENAL CANCER METASTATIC
     Dosage: 125 MG, CYCLIC (DAILY, 4 WEEKS ON, 2 WEEKS OFF)
     Dates: start: 2013
  6. SUTENT [Suspect]
     Active Substance: SUNITINIB MALATE
     Dosage: 30 MG, 1X/DAY

REACTIONS (2)
  - Constipation [Recovered/Resolved]
  - Diarrhoea [Recovered/Resolved]

NARRATIVE: CASE EVENT DATE: 2013
